FAERS Safety Report 12340257 (Version 1)
Quarter: 2016Q2

REPORT INFORMATION
  Report Type: Spontaneous
  Country: US (occurrence: US)
  Receive Date: 20160506
  Receipt Date: 20160506
  Transmission Date: 20160815
  Serious: No
  Sender: FDA-Public Use
  Company Number: US-TEVA-633447USA

PATIENT
  Sex: Male
  Weight: 56.75 kg

DRUGS (3)
  1. DETEMIR [Concomitant]
     Dosage: 10 MILLIGRAM DAILY;
  2. ALBUTEROL. [Concomitant]
     Active Substance: ALBUTEROL
  3. LOSARTAN. [Suspect]
     Active Substance: LOSARTAN
     Indication: HYPERTENSION
     Dosage: 50 MILLIGRAM DAILY;
     Route: 048
     Dates: start: 2013, end: 201512

REACTIONS (1)
  - Somnolence [Recovered/Resolved]

NARRATIVE: CASE EVENT DATE: 2013
